FAERS Safety Report 9200046 (Version 3)
Quarter: 2013Q2

REPORT INFORMATION
  Report Type: Spontaneous
  Country: US (occurrence: US)
  Receive Date: 20130329
  Receipt Date: 20130509
  Transmission Date: 20140414
  Serious: Yes (Life-Threatening, Hospitalization)
  Sender: FDA-Public Use
  Company Number: US-PFIZER INC-2013096237

PATIENT
  Age: 21 Year
  Sex: Male

DRUGS (5)
  1. SILDENAFIL CITRATE [Suspect]
     Indication: VASCULAR TEST
     Dosage: UNK
     Route: 048
  2. SILDENAFIL CITRATE [Suspect]
     Indication: PULMONARY ARTERIAL HYPERTENSION
  3. OXYGEN [Concomitant]
     Indication: PULMONARY HYPERTENSION
     Dosage: UNK
  4. NITRIC OXIDE [Concomitant]
     Dosage: UNK
     Route: 055
  5. WARFARIN [Concomitant]
     Dosage: 5 MG, 1X/DAY AT BEDTIME
     Route: 048

REACTIONS (5)
  - Medication error [Recovered/Resolved]
  - Non-cardiogenic pulmonary oedema [Recovering/Resolving]
  - Right ventricular failure [Recovering/Resolving]
  - Pleural effusion [Recovering/Resolving]
  - Oxygen saturation decreased [Recovering/Resolving]
